FAERS Safety Report 25801221 (Version 1)
Quarter: 2025Q3

REPORT INFORMATION
  Report Type: Report from Study
  Country: US (occurrence: US)
  Receive Date: 20250915
  Receipt Date: 20250915
  Transmission Date: 20251021
  Serious: Yes (Hospitalization)
  Sender: BIOGEN
  Company Number: US-BIOGEN-2025BI01323796

PATIENT
  Sex: Female

DRUGS (2)
  1. TYSABRI [Suspect]
     Active Substance: NATALIZUMAB
     Indication: Multiple sclerosis
     Route: 050
     Dates: start: 20241001
  2. TYSABRI [Suspect]
     Active Substance: NATALIZUMAB
     Route: 050
     Dates: start: 20210209, end: 20240507

REACTIONS (6)
  - Paraplegia [Unknown]
  - Gait disturbance [Unknown]
  - Muscular weakness [Unknown]
  - Dehydration [Unknown]
  - Blood potassium decreased [Unknown]
  - Burning sensation [Unknown]

NARRATIVE: CASE EVENT DATE: 20240101
